FAERS Safety Report 17720926 (Version 2)
Quarter: 2020Q2

REPORT INFORMATION
  Report Type: Spontaneous
  Country: BR (occurrence: BR)
  Receive Date: 20200428
  Receipt Date: 20200430
  Transmission Date: 20200714
  Serious: No
  Sender: FDA-Public Use
  Company Number: BR-TAKEDA-2020TUS020043

PATIENT
  Sex: Female
  Weight: 60 kg

DRUGS (2)
  1. DEXILANT [Suspect]
     Active Substance: DEXLANSOPRAZOLE
     Indication: OESOPHAGITIS
     Dosage: 60 MILLIGRAM, QD
     Route: 048
     Dates: end: 202004
  2. DEXILANT [Suspect]
     Active Substance: DEXLANSOPRAZOLE
     Indication: DYSPEPSIA

REACTIONS (19)
  - Pulmonary function test abnormal [Unknown]
  - Dizziness [Recovered/Resolved]
  - Gastrooesophageal reflux disease [Not Recovered/Not Resolved]
  - Abdominal pain [Recovering/Resolving]
  - Dyspepsia [Not Recovered/Not Resolved]
  - Flatulence [Recovered/Resolved]
  - Labyrinthitis [Recovered/Resolved]
  - Discomfort [Recovered/Resolved]
  - Hypersensitivity [Not Recovered/Not Resolved]
  - Chest pain [Recovered/Resolved]
  - Migraine [Recovered/Resolved]
  - Dyspnoea [Not Recovered/Not Resolved]
  - Pharyngitis [Not Recovered/Not Resolved]
  - Muscle spasms [Recovering/Resolving]
  - Wheezing [Recovered/Resolved]
  - Candida infection [Recovered/Resolved]
  - Sinusitis [Not Recovered/Not Resolved]
  - Eructation [Recovered/Resolved]
  - Palpitations [Recovered/Resolved]
